FAERS Safety Report 16053322 (Version 1)
Quarter: 2019Q1

REPORT INFORMATION
  Report Type: Report from Study
  Country: US (occurrence: US)
  Receive Date: 20190308
  Receipt Date: 20190308
  Transmission Date: 20190418
  Serious: Yes (Hospitalization)
  Sender: FDA-Public Use
  Company Number: US-GILEAD-2019-0395320

PATIENT
  Age: 35 Year
  Sex: Female

DRUGS (1)
  1. AZTREONAM LYSINE [Suspect]
     Active Substance: AZTREONAM LYSINE
     Indication: CYSTIC FIBROSIS
     Dosage: UNK, TID 28 DAYS ON AND 28 DAYS OFF
     Route: 055
     Dates: start: 20180621

REACTIONS (2)
  - Total lung capacity decreased [Unknown]
  - Influenza [Unknown]

NARRATIVE: CASE EVENT DATE: 20190214
